FAERS Safety Report 5843563-1 (Version None)
Quarter: 2008Q3

REPORT INFORMATION
  Report Type: 
  Country: None (occurrence: None)
  Receive Date: 20080813
  Receipt Date: 20080702
  Transmission Date: 20090109
  Serious: No
  Sender: FDA-Public Use
  Company Number: A0690548A

PATIENT
  Age: 74 Year
  Sex: Female

DRUGS (4)
  1. COREG CR [Suspect]
     Indication: PAIN
     Dosage: 10MG PER DAY
     Route: 048
     Dates: start: 20070914
  2. LIPITOR [Concomitant]
  3. PAXIL [Concomitant]
  4. RODEX [Concomitant]

REACTIONS (6)
  - GINGIVAL PAIN [None]
  - HYPOAESTHESIA [None]
  - ORAL DISCOMFORT [None]
  - ORAL MUCOSAL EXFOLIATION [None]
  - PAIN [None]
  - PARAESTHESIA [None]
